FAERS Safety Report 12160138 (Version 2)
Quarter: 2016Q2

REPORT INFORMATION
  Report Type: Report from Study
  Country: US (occurrence: US)
  Receive Date: 20160308
  Receipt Date: 20160406
  Transmission Date: 20160815
  Serious: No
  Sender: FDA-Public Use
  Company Number: US-ABBVIE-16K-163-1573560-00

PATIENT
  Sex: Female
  Weight: 97.16 kg

DRUGS (1)
  1. HUMIRA [Suspect]
     Active Substance: ADALIMUMAB
     Indication: PRODUCT USED FOR UNKNOWN INDICATION
     Route: 058
     Dates: start: 2015

REACTIONS (5)
  - Impaired healing [Unknown]
  - Renal failure [Unknown]
  - Anaemia [Unknown]
  - Bowel movement irregularity [Unknown]
  - Arthropod bite [Unknown]

NARRATIVE: CASE EVENT DATE: 2016
